FAERS Safety Report 20862358 (Version 2)
Quarter: 2022Q2

REPORT INFORMATION
  Report Type: Other
  Country: CA (occurrence: None)
  Receive Date: 20220523
  Receipt Date: 20220525
  Transmission Date: 20220721
  Serious: No
  Sender: FDA-Public Use
  Company Number: CA-ROCHE-2567680

PATIENT
  Age: 34 Year
  Sex: Female

DRUGS (5)
  1. OCREVUS [Suspect]
     Active Substance: OCRELIZUMAB
     Indication: Relapsing-remitting multiple sclerosis
     Dosage: 300 MG, DAY 0, 14 THEN 600 MG ONCE IN 6 MONTHS, CONCENTRATE FOR INTRAVENOUS INFUSION
     Route: 042
     Dates: start: 20200304
  2. TOVIAZ [Concomitant]
     Active Substance: FESOTERODINE FUMARATE
  3. ZOPICLONE [Concomitant]
     Active Substance: ZOPICLONE
  4. ADVIL [Concomitant]
     Active Substance: IBUPROFEN
  5. OXYCODONE [Concomitant]
     Active Substance: OXYCODONE

REACTIONS (16)
  - Sinusitis [Not Recovered/Not Resolved]
  - Headache [Not Recovered/Not Resolved]
  - Oropharyngeal pain [Not Recovered/Not Resolved]
  - Nasal congestion [Recovering/Resolving]
  - Pain [Not Recovered/Not Resolved]
  - Rhinorrhoea [Not Recovered/Not Resolved]
  - Fatigue [Not Recovered/Not Resolved]
  - Muscle spasms [Recovered/Resolved]
  - Muscle tightness [Not Recovered/Not Resolved]
  - Discomfort [Not Recovered/Not Resolved]
  - Electric shock [Not Recovered/Not Resolved]
  - Lethargy [Not Recovered/Not Resolved]
  - Cough [Not Recovered/Not Resolved]
  - Throat tightness [Not Recovered/Not Resolved]
  - Insomnia [Not Recovered/Not Resolved]
  - COVID-19 [Not Recovered/Not Resolved]

NARRATIVE: CASE EVENT DATE: 20200308
